FAERS Safety Report 6203310-0 (Version None)
Quarter: 2009Q2

REPORT INFORMATION
  Report Type: 
  Country: None (occurrence: None)
  Receive Date: 20090527
  Receipt Date: 20090525
  Transmission Date: 20091009
  Serious: Yes (Other)
  Sender: FDA-Public Use
  Company Number: PHHY2009CH14826

PATIENT
  Sex: Female

DRUGS (3)
  1. MIACALCIN [Suspect]
     Indication: COMPLEX REGIONAL PAIN SYNDROME
     Dosage: 200 IU/DAY
     Dates: start: 20090223
  2. BISOPROLOL FUMARATE [Concomitant]
     Dosage: 2.5 MG/DAY
  3. ASPIRIN [Concomitant]
     Dosage: 100 MG/DAY

REACTIONS (4)
  - DIARRHOEA [None]
  - FEELING HOT [None]
  - NAUSEA [None]
  - VOMITING [None]
